FAERS Safety Report 8539454-8 (Version None)
Quarter: 2012Q3

REPORT INFORMATION
  Report Type: 
  Country: None (occurrence: None)
  Receive Date: 20120726
  Receipt Date: 20120717
  Transmission Date: 20120928
  Serious: Yes (Death, Hospitalization)
  Sender: FDA-Public Use
  Company Number: DE-CELGENEUS-062-21880-12061328

PATIENT
  Age: 58 Year
  Sex: Female

DRUGS (17)
  1. ANTIEMETIC [Concomitant]
     Route: 065
  2. ZOPICLON [Concomitant]
     Route: 065
  3. ACYCLOVIR [Concomitant]
     Route: 065
  4. PANTOPRAZOLE [Concomitant]
     Dosage: 40 MILLIGRAM
     Route: 065
  5. ESCITALOPRAM [Concomitant]
     Dosage: 10 MILLIGRAM
     Route: 065
  6. AMPHOTERICIN B [Concomitant]
     Route: 065
  7. METOPROLOL SUCCINATE [Concomitant]
     Route: 065
  8. METOCLOPRAMIDA [Concomitant]
     Dosage: GTT
     Route: 065
  9. PALLADONE [Concomitant]
     Dosage: 4 MILLIGRAM
     Route: 065
  10. MOVIPREP [Concomitant]
     Route: 065
  11. ZOMETA [Concomitant]
     Dosage: 4MG\5ML
     Route: 065
  12. COTRIM DS [Concomitant]
     Dosage: 274.2857 MILLIGRAM
     Route: 065
  13. REVLIMID [Suspect]
     Indication: PLASMACYTOMA
     Dosage: 5 MILLIGRAM
     Route: 048
     Dates: start: 20120425, end: 20120401
  14. KEPPRA [Concomitant]
     Dosage: 1000 MILLIGRAM
     Route: 065
  15. XIPAMID [Concomitant]
     Dosage: 20
     Route: 065
  16. FOLIC ACID [Concomitant]
     Dosage: 1.4286 MILLIGRAM
     Route: 065
  17. TEGRETOL [Concomitant]
     Dosage: 300
     Route: 065

REACTIONS (2)
  - CARDIOVASCULAR INSUFFICIENCY [None]
  - BRADYCARDIA [None]
